FAERS Safety Report 9161563 (Version 3)
Quarter: 2013Q2

REPORT INFORMATION
  Report Type: Spontaneous
  Country: US (occurrence: US)
  Receive Date: 20130313
  Receipt Date: 20130409
  Transmission Date: 20140414
  Serious: No
  Sender: FDA-Public Use
  Company Number: US-PFIZER INC-2013082043

PATIENT
  Age: 77 Year
  Sex: Female
  Weight: 55.78 kg

DRUGS (5)
  1. ESTRING [Suspect]
     Indication: BLADDER PROLAPSE
     Dosage: 2 MG, UNK
     Route: 067
     Dates: start: 201301
  2. AGGRENOX [Concomitant]
     Indication: TRANSIENT ISCHAEMIC ATTACK
     Dosage: UNK
  3. ZOCOR [Concomitant]
     Dosage: UNK
  4. AMBIEN [Concomitant]
     Dosage: UNK
  5. TRAMADOL [Concomitant]
     Indication: MUSCULOSKELETAL PAIN
     Dosage: UNK

REACTIONS (3)
  - Nausea [Not Recovered/Not Resolved]
  - Vomiting [Not Recovered/Not Resolved]
  - Abdominal discomfort [Unknown]
